FAERS Safety Report 9372613 (Version 1)
Quarter: 2013Q2

REPORT INFORMATION
  Report Type: Report from Study
  Country: US (occurrence: US)
  Receive Date: 20130627
  Receipt Date: 20130627
  Transmission Date: 20140414
  Serious: Yes (Other)
  Sender: FDA-Public Use
  Company Number: US-MYLANLABS-2013S1002692

PATIENT
  Age: 52 Year
  Sex: Female

DRUGS (6)
  1. CLOZAPINE TABLETS [Suspect]
     Indication: SCHIZOPHRENIA
     Route: 048
     Dates: start: 2010, end: 20130208
  2. OMEPRAZOLE [Concomitant]
  3. LEVOTHYROXINE [Concomitant]
  4. DEPAKOTE [Concomitant]
  5. TRAMADOL [Concomitant]
  6. HYDROXYZINE [Concomitant]

REACTIONS (1)
  - Granulocytopenia [Not Recovered/Not Resolved]
